FAERS Safety Report 13649491 (Version 2)
Quarter: 2017Q4

REPORT INFORMATION
  Report Type: Report from Study
  Country: GB (occurrence: GB)
  Receive Date: 20170614
  Receipt Date: 20171029
  Transmission Date: 20180320
  Serious: Yes (Hospitalization, Other)
  Sender: FDA-Public Use
  Company Number: GB-AMGEN-GBRSL2017086948

PATIENT
  Age: 42 Year
  Sex: Male

DRUGS (2)
  1. ARANESP [Suspect]
     Active Substance: DARBEPOETIN ALFA
     Indication: PRODUCT USED FOR UNKNOWN INDICATION
     Dosage: 100 MUG, UNK
     Route: 065
  2. ARANESP [Suspect]
     Active Substance: DARBEPOETIN ALFA
     Dosage: 150 MUG, UNK
     Route: 065

REACTIONS (6)
  - Device related thrombosis [Unknown]
  - Lymphadenectomy [Unknown]
  - Infection [Unknown]
  - Sepsis [Recovered/Resolved]
  - Complication associated with device [Unknown]
  - Haemodialysis [Unknown]

NARRATIVE: CASE EVENT DATE: 2017
